FAERS Safety Report 8307869-9 (Version None)
Quarter: 2012Q2

REPORT INFORMATION
  Report Type: 
  Country: None (occurrence: None)
  Receive Date: 20120424
  Receipt Date: 20120417
  Transmission Date: 20120825
  Serious: Yes (Other)
  Sender: FDA-Public Use
  Company Number: NZ-ABBOTT-12P-118-0911655-00

PATIENT

DRUGS (2)
  1. HUMIRA [Suspect]
  2. HUMIRA [Suspect]
     Indication: CROHN'S DISEASE

REACTIONS (3)
  - CROHN'S DISEASE [None]
  - INTESTINAL MASS [None]
  - INTESTINAL OBSTRUCTION [None]
